FAERS Safety Report 7927780-2 (Version None)
Quarter: 2011Q4

REPORT INFORMATION
  Report Type: 
  Country: None (occurrence: None)
  Receive Date: 20111118
  Receipt Date: 20111111
  Transmission Date: 20120403
  Serious: Yes (Other)
  Sender: FDA-Public Use
  Company Number: US-JNJFOC-20111105601

PATIENT
  Sex: Female
  Weight: 61.69 kg

DRUGS (15)
  1. VIVELLE-DOT [Suspect]
     Indication: HYSTERECTOMY
     Route: 062
     Dates: start: 20110101, end: 20110101
  2. ZYRTEC [Suspect]
     Indication: ANTIALLERGIC THERAPY
     Dosage: SPLITTING THE TABLETS IN HALF
     Route: 048
     Dates: start: 20110101
  3. CLIMARA [Suspect]
     Dosage: ELEVEN PLUS YEARS AGO
     Route: 062
  4. ZITHROMAX [Suspect]
     Dosage: AS PER THE COURSE
     Route: 065
     Dates: start: 20110101, end: 20110101
  5. COZAAR [Concomitant]
     Indication: HYPERTENSION
     Route: 065
  6. CLIMARA [Suspect]
     Indication: HYSTERECTOMY
     Route: 062
     Dates: start: 20110101, end: 20110101
  7. CLIMARA [Suspect]
     Route: 062
     Dates: start: 20110101, end: 20111003
  8. ZITHROMAX [Suspect]
     Route: 065
     Dates: start: 20110101, end: 20110101
  9. ZITHROMAX [Suspect]
     Indication: COUGH
     Route: 065
     Dates: start: 20110101, end: 20110101
  10. ZITHROMAX [Suspect]
     Indication: INCREASED UPPER AIRWAY SECRETION
     Dosage: AS PER THE COURSE
     Route: 065
     Dates: start: 20110101, end: 20110101
  11. MEDROL [Suspect]
     Indication: INCREASED UPPER AIRWAY SECRETION
     Route: 065
     Dates: start: 20110101, end: 20110101
  12. MEDROL [Suspect]
     Indication: COUGH
     Route: 065
     Dates: start: 20110101, end: 20110101
  13. AZELASTINE HCL [Suspect]
     Indication: UPPER-AIRWAY COUGH SYNDROME
     Dosage: ONE OR TWO PUFFS AS NEEDED
     Route: 065
     Dates: start: 20110101
  14. ZYRTEC [Suspect]
     Route: 048
     Dates: start: 20110101, end: 20110101
  15. CLIMARA [Suspect]
     Route: 062
     Dates: start: 20110101

REACTIONS (13)
  - UPPER-AIRWAY COUGH SYNDROME [None]
  - INSOMNIA [None]
  - ASTHMA [None]
  - PHARYNGEAL INFLAMMATION [None]
  - HOT FLUSH [None]
  - APHONIA [None]
  - NASAL INFLAMMATION [None]
  - COUGH [None]
  - DRY MOUTH [None]
  - NASAL DRYNESS [None]
  - INCREASED UPPER AIRWAY SECRETION [None]
  - DRY THROAT [None]
  - DYSPHAGIA [None]
